FAERS Safety Report 18068747 (Version 2)
Quarter: 2020Q3

REPORT INFORMATION
  Report Type: Not Available
  Country: US (occurrence: US)
  Receive Date: 20200724
  Receipt Date: 20200819
  Transmission Date: 20201103
  Serious: Yes (Death, Hospitalization, Other)
  Sender: FDA-Public Use
  Company Number: US-NEUROCRINE BIOSCIENCES INC.-2020NBI02613

PATIENT
  Age: 88 Year
  Sex: Female

DRUGS (10)
  1. INGREZZA [Suspect]
     Active Substance: VALBENAZINE
     Indication: TARDIVE DYSKINESIA
     Route: 048
     Dates: end: 20200710
  2. NAMENDA [Concomitant]
     Active Substance: MEMANTINE HYDROCHLORIDE
     Route: 048
     Dates: start: 20200610
  3. REQUIP [Concomitant]
     Active Substance: ROPINIROLE HYDROCHLORIDE
     Route: 048
  4. THERAGRAN M [Concomitant]
     Active Substance: VITAMINS
     Route: 048
  5. RISAQUAD?2 [Concomitant]
     Route: 048
  6. EXELON [Concomitant]
     Active Substance: RIVASTIGMINE TARTRATE
     Dosage: 4.6 MG/24HR
     Route: 062
  7. BENTYL [Concomitant]
     Active Substance: DICYCLOMINE HYDROCHLORIDE
     Route: 048
     Dates: start: 20200610
  8. NEBIVOLOL. [Concomitant]
     Active Substance: NEBIVOLOL
     Route: 048
  9. COZAAR [Concomitant]
     Active Substance: LOSARTAN POTASSIUM
     Route: 048
  10. XALATAN [Concomitant]
     Active Substance: LATANOPROST
     Dosage: 1 DROP, BOTH EYES AT BEDTIME
     Route: 047
     Dates: start: 20200610

REACTIONS (4)
  - Decubitus ulcer [Not Recovered/Not Resolved]
  - Acute kidney injury [Unknown]
  - Malnutrition [Unknown]
  - Sepsis [Fatal]

NARRATIVE: CASE EVENT DATE: 2020
